FAERS Safety Report 4786082-6 (Version None)
Quarter: 2005Q3

REPORT INFORMATION
  Report Type: 
  Country: None (occurrence: None)
  Receive Date: 20050930
  Receipt Date: 20050920
  Transmission Date: 20060218
  Serious: Yes (Other)
  Sender: FDA-Public Use
  Company Number: 2005132430

PATIENT
  Age: 9 Year
  Sex: Male

DRUGS (1)
  1. SOLU-CORTEF [Suspect]
     Indication: ANAPHYLACTIC SHOCK
     Dosage: (1 IN 1 TOTAL), INTRAVENOUS
     Route: 042
     Dates: start: 20050915, end: 20050915

REACTIONS (1)
  - ASTHMA [None]
